FAERS Safety Report 13627762 (Version 3)
Quarter: 2019Q2

REPORT INFORMATION
  Report Type: Report from Study
  Country: IT (occurrence: IT)
  Receive Date: 20170608
  Receipt Date: 20190417
  Transmission Date: 20190711
  Serious: Yes (Hospitalization)
  Sender: FDA-Public Use
  Company Number: IT-ADIENNEP-2017AD000159

PATIENT
  Age: 13 Year
  Sex: Male

DRUGS (2)
  1. TEPADINA [Suspect]
     Active Substance: THIOTEPA
     Indication: STEM CELL TRANSPLANT
     Dosage: 8 MG/KG; ON DAY -5
     Route: 042
     Dates: start: 20160703, end: 20160703
  2. TREOSULFAN [Suspect]
     Active Substance: TREOSULFAN
     Indication: STEM CELL TRANSPLANT
     Dosage: 14000 MG/M2 DAILY ON DAYS - 4, -3, AND - 2

REACTIONS (6)
  - Hepatitis [Recovered/Resolved]
  - Diarrhoea [Recovered/Resolved]
  - Bone pain [Recovered/Resolved]
  - Cholecystitis [Recovered/Resolved]
  - Atypical mycobacterial infection [Recovered/Resolved]
  - Sepsis [Recovered/Resolved]

NARRATIVE: CASE EVENT DATE: 20160717
